FAERS Safety Report 22145227 (Version 2)
Quarter: 2023Q1

REPORT INFORMATION
  Report Type: Spontaneous
  Country: EG (occurrence: EG)
  Receive Date: 20230328
  Receipt Date: 20230330
  Transmission Date: 20230418
  Serious: Yes (Other)
  Sender: FDA-Public Use
  Company Number: EG-BAYER-2023A035901

PATIENT
  Age: 62 Year
  Sex: Male

DRUGS (1)
  1. EYLEA [Suspect]
     Active Substance: AFLIBERCEPT
     Indication: Retinal vein occlusion
     Dosage: UNK, STRENGTH OF 120MG/3ML + RECEIVED THE DOSE OF 0.1 ML ONCE, LEFT EYE, SOLUTION FOR INJECTION
     Route: 031
     Dates: start: 20230228, end: 20230228

REACTIONS (2)
  - Vitrectomy [Not Recovered/Not Resolved]
  - Endophthalmitis [Not Recovered/Not Resolved]

NARRATIVE: CASE EVENT DATE: 20230301
